FAERS Safety Report 23713218 (Version 3)
Quarter: 2024Q3

REPORT INFORMATION
  Report Type: Spontaneous
  Country: BE (occurrence: BE)
  Receive Date: 20240405
  Receipt Date: 20240814
  Transmission Date: 20241016
  Serious: Yes (Life-Threatening, Other)
  Sender: JOHNSON AND JOHNSON
  Company Number: BE-JNJFOC-20240377723

PATIENT
  Age: 56 Year
  Sex: Female

DRUGS (14)
  1. TREMFYA [Suspect]
     Active Substance: GUSELKUMAB
     Indication: Psoriasis
     Dosage: LAST DOSE WAS ADMINISTERED ON 26/02/2024
     Route: 065
     Dates: start: 201808
  2. TREMFYA [Suspect]
     Active Substance: GUSELKUMAB
  3. TREMFYA [Suspect]
     Active Substance: GUSELKUMAB
  4. ASPIRIN [Concomitant]
     Active Substance: ASPIRIN
     Route: 065
  5. NEBIVOLOL [Concomitant]
     Active Substance: NEBIVOLOL
     Route: 065
  6. INDAPAMIDE\PERINDOPRIL ARGININE [Concomitant]
     Active Substance: INDAPAMIDE\PERINDOPRIL ARGININE
     Route: 065
  7. SIMVASTATIN [Concomitant]
     Active Substance: SIMVASTATIN
     Route: 065
  8. TRAMADOL [Concomitant]
     Active Substance: TRAMADOL\TRAMADOL HYDROCHLORIDE
     Route: 065
  9. TRAMADOL [Concomitant]
     Active Substance: TRAMADOL\TRAMADOL HYDROCHLORIDE
     Route: 065
  10. TRAZODONE [Concomitant]
     Active Substance: TRAZODONE HYDROCHLORIDE
     Dosage: 100
     Route: 065
  11. INSULIN NOS [Concomitant]
     Active Substance: INSULIN NOS
     Dosage: 200IU/ML
     Route: 065
  12. ESOMEPRAZOLE MAGNESIUM [Concomitant]
     Active Substance: ESOMEPRAZOLE MAGNESIUM
  13. RIVOTRIL [Concomitant]
     Active Substance: CLONAZEPAM
  14. ESCITALOPRAM OXALATE [Concomitant]
     Active Substance: ESCITALOPRAM OXALATE

REACTIONS (2)
  - Small cell lung cancer [Not Recovered/Not Resolved]
  - Gastric bypass [Unknown]

NARRATIVE: CASE EVENT DATE: 20210101
